FAERS Safety Report 24753756 (Version 3)
Quarter: 2025Q4

REPORT INFORMATION
  Report Type: Report from Study
  Country: CO (occurrence: None)
  Receive Date: 20241219
  Receipt Date: 20251014
  Transmission Date: 20260117
  Serious: Yes (Hospitalization, Other)
  Sender: UCB
  Company Number: CO-UCBSA-2024065647

PATIENT
  Age: 44 Year

DRUGS (2)
  1. BRIVARACETAM [Suspect]
     Active Substance: BRIVARACETAM
     Indication: Epilepsy
     Dosage: 100 MILLIGRAM, 2X/DAY (BID)
  2. BRIVARACETAM [Suspect]
     Active Substance: BRIVARACETAM
     Dosage: 100 MILLIGRAM, 2X/DAY (BID)

REACTIONS (5)
  - Seizure [Recovered/Resolved]
  - Amnesia [Recovered/Resolved]
  - Dizziness [Unknown]
  - Therapy interrupted [Unknown]
  - Product dispensing issue [Unknown]
